FAERS Safety Report 17820374 (Version 1)
Quarter: 2020Q2

REPORT INFORMATION
  Report Type: Spontaneous
  Country: CN (occurrence: CN)
  Receive Date: 20200525
  Receipt Date: 20200525
  Transmission Date: 20200714
  Serious: Yes (Other)
  Sender: FDA-Public Use
  Company Number: CN-ROCHE-2607274

PATIENT
  Age: 63 Year
  Sex: Female

DRUGS (6)
  1. AVASTIN [Suspect]
     Active Substance: BEVACIZUMAB
     Route: 065
     Dates: start: 20200403
  2. AVASTIN [Suspect]
     Active Substance: BEVACIZUMAB
     Indication: LUNG ADENOCARCINOMA
     Dosage: ON DAY 0 FOR 4 COURSES
     Route: 065
     Dates: start: 20191012, end: 20200222
  3. PEMETREXED. [Concomitant]
     Active Substance: PEMETREXED
     Dosage: ON DAY1 FOR 4 COURSES
     Route: 065
     Dates: start: 20191012, end: 20200222
  4. CISPLATIN. [Concomitant]
     Active Substance: CISPLATIN
     Dosage: DAY1-3 FOR 4 COURSES
     Route: 065
     Dates: start: 20191012, end: 20200222
  5. PEMETREXED. [Concomitant]
     Active Substance: PEMETREXED
     Route: 065
     Dates: start: 20200403
  6. CATEQUENTINIB. [Concomitant]
     Active Substance: CATEQUENTINIB
     Route: 048
     Dates: start: 201907, end: 201909

REACTIONS (2)
  - Bone marrow failure [Unknown]
  - Gastrointestinal disorder [Unknown]
